FAERS Safety Report 18410345 (Version 2)
Quarter: 2020Q4

REPORT INFORMATION
  Report Type: Spontaneous
  Country: CZ (occurrence: CZ)
  Receive Date: 20201021
  Receipt Date: 20201109
  Transmission Date: 20210114
  Serious: Yes (Other)
  Sender: FDA-Public Use
  Company Number: CZ-TEVA-2020-CZ-1839472

PATIENT
  Sex: Male
  Weight: 125 kg

DRUGS (18)
  1. PREGABALIN. [Suspect]
     Active Substance: PREGABALIN
     Indication: ANALGESIC THERAPY
     Route: 065
  2. CITALOPRAM [Suspect]
     Active Substance: CITALOPRAM HYDROBROMIDE
     Indication: ANTIDEPRESSANT THERAPY
     Route: 065
  3. OXYCODONE [Suspect]
     Active Substance: OXYCODONE
     Indication: ANALGESIC THERAPY
     Route: 065
  4. VENLAFAXINE [Suspect]
     Active Substance: VENLAFAXINE HYDROCHLORIDE
     Indication: ANTIDEPRESSANT THERAPY
     Route: 065
  5. BUPRENORPHINE. [Suspect]
     Active Substance: BUPRENORPHINE
     Indication: ANALGESIC THERAPY
     Route: 065
  6. BISACODYL. [Concomitant]
     Active Substance: BISACODYL
     Indication: CONSTIPATION
     Dosage: OCCASIONALLY (1-2 TIMES A WEEK) HE TOOK BISACODYL 10 MG
     Route: 065
  7. GABAPENTIN. [Suspect]
     Active Substance: GABAPENTIN
     Indication: ANALGESIC THERAPY
     Route: 065
  8. DULOXETINE. [Suspect]
     Active Substance: DULOXETINE
     Indication: ANTIDEPRESSANT THERAPY
     Route: 065
  9. TRAZODONE [Suspect]
     Active Substance: TRAZODONE HYDROCHLORIDE
     Indication: ANTIDEPRESSANT THERAPY
     Route: 065
  10. FENTANYL. [Suspect]
     Active Substance: FENTANYL
     Indication: ANALGESIC THERAPY
     Route: 065
  11. LACTULOSE. [Suspect]
     Active Substance: LACTULOSE
     Indication: CONSTIPATION
     Dosage: HE MAINLY TOOK LACTULOSE UP TO 9 TABLESPOONS IN 3 DOSES A DAY
     Route: 065
  12. TRAMADOL. [Suspect]
     Active Substance: TRAMADOL
     Indication: ANALGESIC THERAPY
     Dosage: 500 MILLIGRAM DAILY; AROUND 500 MG/DAY
     Route: 065
  13. TAPENTADOL [Suspect]
     Active Substance: TAPENTADOL
     Indication: ANALGESIC THERAPY
     Dosage: 2 X 200 MG
     Route: 065
  14. TRAMADOL W/PARACETAMOL [Suspect]
     Active Substance: ACETAMINOPHEN\TRAMADOL
     Indication: ANALGESIC THERAPY
     Dosage: UP TO 225MG TRAMADOL/DAY
     Route: 065
  15. DICLOFENAC [Suspect]
     Active Substance: DICLOFENAC
     Indication: ANALGESIC THERAPY
     Dosage: 100-200 MG/WEEK
     Route: 065
  16. MACROGOL 4000 [Suspect]
     Active Substance: POLYETHYLENE GLYCOL 4000
     Indication: CONSTIPATION
     Dosage: ONCE OR TWICE A WEEK
     Route: 065
  17. SODIUM PICOSULFATE [Concomitant]
     Active Substance: SODIUM PICOSULFATE
     Indication: CONSTIPATION
     Dosage: AT A DOSE OF 10MG OR 20 DROPS IN THE EVENING
     Route: 065
  18. NALOXONE [Suspect]
     Active Substance: NALOXONE
     Indication: ANALGESIC THERAPY
     Route: 065

REACTIONS (12)
  - Vomiting [Unknown]
  - Constipation [Recovering/Resolving]
  - Flatulence [Unknown]
  - Headache [Unknown]
  - Abdominal pain [Unknown]
  - Therapeutic product effect incomplete [Unknown]
  - Quality of life decreased [Recovering/Resolving]
  - Depression [Unknown]
  - Dry mouth [Unknown]
  - Weight increased [Unknown]
  - Hypersensitivity [Unknown]
  - Nausea [Unknown]
